FAERS Safety Report 5290788-2 (Version None)
Quarter: 2007Q2

REPORT INFORMATION
  Report Type: 
  Country: None (occurrence: None)
  Receive Date: 20070409
  Receipt Date: 20070328
  Transmission Date: 20071010
  Serious: Yes (Death, Other)
  Sender: FDA-Public Use
  Company Number: JP-PFIZER INC-2007025818

PATIENT
  Age: 80 Year
  Sex: Female

DRUGS (2)
  1. ZYVOX [Suspect]
     Indication: STAPHYLOCOCCAL INFECTION
     Dosage: DAILY DOSE:1200MG
     Route: 042
     Dates: start: 20070214, end: 20070227
  2. ANTIBIOTICS [Concomitant]

REACTIONS (2)
  - PLATELET COUNT DECREASED [None]
  - PNEUMONIA [None]
